FAERS Safety Report 9274334 (Version 1)
Quarter: 2013Q2

REPORT INFORMATION
  Report Type: Spontaneous
  Country: US (occurrence: US)
  Receive Date: 20130506
  Receipt Date: 20130506
  Transmission Date: 20140414
  Serious: Yes (Other)
  Sender: FDA-Public Use
  Company Number: CHPA2013US007568

PATIENT
  Sex: Female

DRUGS (1)
  1. THERAFLU UNKNOWN [Suspect]
     Indication: BRONCHITIS
     Dosage: UNK, UNK
     Route: 048

REACTIONS (3)
  - Bronchitis [Unknown]
  - Therapeutic response unexpected [Unknown]
  - Off label use [Unknown]
